FAERS Safety Report 19194898 (Version 2)
Quarter: 2021Q2

REPORT INFORMATION
  Report Type: Spontaneous
  Country: NL (occurrence: IT)
  Receive Date: 20210429
  Receipt Date: 20210601
  Transmission Date: 20210717
  Serious: Yes (Life-Threatening)
  Sender: FDA-Public Use
  Company Number: IT-FRESENIUS KABI-FK202104105

PATIENT
  Age: 68 Year
  Sex: Male
  Weight: 100 kg

DRUGS (9)
  1. PANITUMUMAB [Suspect]
     Active Substance: PANITUMUMAB
     Indication: METASTASES TO LUNG
     Dosage: VECTIBIX 20 MG/ML CONCENTRATE FOR SOLUTION FOR INFUSION
     Route: 042
     Dates: start: 20210323, end: 20210412
  2. ACETYLSALICYLATE LYSINE [Concomitant]
     Active Substance: ASPIRIN DL-LYSINE
     Indication: PRODUCT USED FOR UNKNOWN INDICATION
     Dosage: CARDIRENE 75 MG
     Route: 048
  3. COVID?19 VACCINE NOS. [Concomitant]
     Active Substance: COVID-19 VACCINE NOS
     Indication: COVID-19 IMMUNISATION
     Dosage: COMIRNATY?PHARMACEUTICAL DOSE FORM (FREE TEXT): CONCENTRATE FOR DISPERSION FOR INFUSION
     Route: 030
     Dates: start: 20210407, end: 20210407
  4. CALCIUM LEVOFOLINATE [Suspect]
     Active Substance: LEVOLEUCOVORIN CALCIUM
     Indication: METASTASES TO LUNG
     Route: 042
     Dates: start: 20210323, end: 20210412
  5. HYDROCHLOROTHIAZIDE\NEBIVOLOL HYDROCHLORIDE [Concomitant]
     Active Substance: HYDROCHLOROTHIAZIDE\NEBIVOLOL HYDROCHLORIDE
     Indication: PRODUCT USED FOR UNKNOWN INDICATION
     Dosage: LOBIDIUR 5 MG/12, 5 MG FILM COATED TABLETS
     Route: 048
  6. OXALIPLATIN (MANUFACTURER UNKNOWN) [Suspect]
     Active Substance: OXALIPLATIN
     Indication: METASTASES TO LUNG
     Route: 042
     Dates: start: 20210323, end: 20210412
  7. PANITUMUMAB [Suspect]
     Active Substance: PANITUMUMAB
     Indication: METASTASES TO LUNG
     Dosage: VECTIBIX 20 MG/ML CONCENTRATE FOR SOLUTION FOR INFUSION
     Route: 042
     Dates: start: 20210323, end: 20210412
  8. MINOCYCLINE HYDROCHLORIDE. [Concomitant]
     Active Substance: MINOCYCLINE HYDROCHLORIDE
     Indication: PRODUCT USED FOR UNKNOWN INDICATION
     Dosage: MINOCIN 100 MG HARD CAPSULES
     Route: 048
     Dates: start: 20210323, end: 20210412
  9. ZOFENOPRIL CALCIUM [Concomitant]
     Active Substance: ZOFENOPRIL CALCIUM
     Indication: PRODUCT USED FOR UNKNOWN INDICATION
     Dosage: ZOPRANOL 30 MG FILM COATED TABLETS
     Route: 048

REACTIONS (4)
  - Oxygen saturation decreased [Unknown]
  - Hypotension [Unknown]
  - Acute myocardial infarction [Unknown]
  - Bradycardia [Unknown]

NARRATIVE: CASE EVENT DATE: 20210412
